FAERS Safety Report 8099900-3 (Version None)
Quarter: 2012Q1

REPORT INFORMATION
  Report Type: 
  Country: None (occurrence: None)
  Receive Date: 20120131
  Receipt Date: 20120124
  Transmission Date: 20120608
  Serious: Yes (Death, Hospitalization)
  Sender: FDA-Public Use
  Company Number: TH-CELGENEUS-155-21880-11123503

PATIENT
  Sex: Male

DRUGS (3)
  1. LAMIVUDINE [Concomitant]
     Indication: HEPATITIS B
     Dosage: 200 MILLIGRAM
     Route: 048
  2. REVLIMID [Suspect]
     Indication: MULTIPLE MYELOMA
     Dosage: 25 MILLIGRAM
     Route: 048
     Dates: start: 20110627, end: 20111208
  3. ACYCLOVIR [Concomitant]
     Indication: ANTIVIRAL PROPHYLAXIS
     Route: 048

REACTIONS (1)
  - MULTIPLE MYELOMA [None]
